FAERS Safety Report 24895064 (Version 1)
Quarter: 2025Q1

REPORT INFORMATION
  Report Type: Spontaneous
  Country: US (occurrence: None)
  Receive Date: 20250128
  Receipt Date: 20250128
  Transmission Date: 20250408
  Serious: Yes (Disabling)
  Sender: FDA-CTU
  Company Number: None

PATIENT
  Age: 25 Year
  Sex: Male
  Weight: 67.5 kg

DRUGS (1)
  1. FINASTERIDE [Suspect]
     Active Substance: FINASTERIDE
     Indication: Alopecia
     Dates: start: 20240401, end: 20240601

REACTIONS (6)
  - Dihydrotestosterone decreased [None]
  - Loss of libido [None]
  - Loss of libido [None]
  - Penile size reduced [None]
  - Irritability [None]
  - Testicular pain [None]

NARRATIVE: CASE EVENT DATE: 20240601
